FAERS Safety Report 25039449 (Version 1)
Quarter: 2025Q1

REPORT INFORMATION
  Report Type: Spontaneous
  Country: US (occurrence: US)
  Receive Date: 20250305
  Receipt Date: 20250305
  Transmission Date: 20250409
  Serious: No
  Sender: BAUSCH AND LOMB
  Company Number: US-BAUSCHBL-2025BNL000952

PATIENT
  Age: 83 Year
  Sex: Female

DRUGS (1)
  1. MIEBO [Suspect]
     Active Substance: PERFLUOROHEXYLOCTANE
     Indication: Dry eye
     Route: 047

REACTIONS (5)
  - Eye infection [Unknown]
  - Product container issue [Unknown]
  - Product complaint [Unknown]
  - Product knowledge deficit [Unknown]
  - Inappropriate schedule of product administration [Unknown]
